FAERS Safety Report 10289596 (Version 1)
Quarter: 2014Q3

REPORT INFORMATION
  Report Type: Spontaneous
  Country: US (occurrence: None)
  Receive Date: 20140707
  Receipt Date: 20140707
  Transmission Date: 20150326
  Serious: Yes (Life-Threatening, Hospitalization, Disabling)
  Sender: FDA-Public Use
  Company Number: None

PATIENT
  Age: 54 Year
  Sex: Female
  Weight: 90.27 kg

DRUGS (1)
  1. CYMBALTA [Suspect]
     Active Substance: DULOXETINE HYDROCHLORIDE
     Indication: FIBROMYALGIA
     Dosage: 1 PILL A DAY
     Route: 048

REACTIONS (15)
  - Dyspnoea [None]
  - Nervous system disorder [None]
  - Somnolence [None]
  - Nuclear magnetic resonance imaging brain abnormal [None]
  - Jaw disorder [None]
  - Asthenia [None]
  - Paraesthesia [None]
  - Dysgeusia [None]
  - Nausea [None]
  - Vision blurred [None]
  - Blindness [None]
  - Headache [None]
  - Tremor [None]
  - Muscular weakness [None]
  - White blood cell count increased [None]
